FAERS Safety Report 6384557-X (Version None)
Quarter: 2009Q4

REPORT INFORMATION
  Report Type: 
  Country: None (occurrence: None)
  Receive Date: 20091001
  Receipt Date: 20090923
  Transmission Date: 20100525
  Serious: Yes (Disabling, Other)
  Sender: FDA-Public Use
  Company Number: GB-PURDUE-USA-2009-0039954

PATIENT
  Age: 74 Year
  Sex: Female

DRUGS (4)
  1. TRAMADOL HCL [Suspect]
     Indication: ARTHRALGIA
     Dosage: 400 MG, DAILY
  2. TRAMADOL HCL [Suspect]
     Indication: OSTEOARTHRITIS
  3. ROPINIROLE [Concomitant]
     Indication: PARKINSON'S DISEASE
     Dosage: 4 MG, TID
  4. CO-CARELDOPA [Concomitant]
     Indication: PARKINSON'S DISEASE
     Dosage: 12.5 MG, TID

REACTIONS (6)
  - ACTIVITIES OF DAILY LIVING IMPAIRED [None]
  - CONDITION AGGRAVATED [None]
  - DYSSTASIA [None]
  - GAIT DISTURBANCE [None]
  - PARKINSON'S DISEASE [None]
  - TREMOR [None]
